FAERS Safety Report 6930661-4 (Version None)
Quarter: 2010Q3

REPORT INFORMATION
  Report Type: 
  Country: None (occurrence: None)
  Receive Date: 20100818
  Receipt Date: 20100707
  Transmission Date: 20110219
  Serious: No
  Sender: FDA-Public Use
  Company Number: A0868968A

PATIENT
  Age: 63 Year
  Sex: Female

DRUGS (6)
  1. COREG CR [Suspect]
     Indication: HYPERTENSION
     Dosage: 20MG PER DAY
     Route: 048
     Dates: start: 20050101, end: 20100705
  2. BENICAR [Concomitant]
  3. MULTI-VITAMIN [Concomitant]
  4. ASPIRIN [Concomitant]
  5. CALCIUM [Concomitant]
  6. METAMUCIL-2 [Concomitant]

REACTIONS (10)
  - DECREASED APPETITE [None]
  - DIARRHOEA [None]
  - DIZZINESS [None]
  - DYSPNOEA [None]
  - EAR PAIN [None]
  - FATIGUE [None]
  - HEART RATE DECREASED [None]
  - HYPOTENSION [None]
  - RHINORRHOEA [None]
  - WEIGHT INCREASED [None]
